FAERS Safety Report 7000383-2 (Version None)
Quarter: 2010Q3

REPORT INFORMATION
  Report Type: 
  Country: None (occurrence: None)
  Receive Date: 20100920
  Receipt Date: 20100517
  Transmission Date: 20110219
  Serious: Yes (Hospitalization, Other)
  Sender: FDA-Public Use
  Company Number: US-ASTRAZENECA-2010SE24024

PATIENT
  Age: 55 Year
  Sex: Male

DRUGS (11)
  1. SEROQUEL [Suspect]
     Dosage: 100 MG TO 200 MG
     Route: 048
     Dates: start: 20030514
  2. ZOLOFT [Concomitant]
     Dates: start: 20021031
  3. GLUCOPHAGE XR [Concomitant]
     Dates: start: 20030724
  4. VALTREX [Concomitant]
     Dates: start: 20030724
  5. HYDROCHLOROTHIAZIDE [Concomitant]
     Dates: start: 20030812
  6. HYDROCODONE BITARTRATE AND ACETAMINOPHEN [Concomitant]
     Dates: start: 20030829
  7. AMOXICILLIN [Concomitant]
     Dates: start: 20050302
  8. LISINOPRIL [Concomitant]
     Dates: start: 20080415
  9. AVAPRO [Concomitant]
     Dates: start: 20080415
  10. EFFEXOR [Concomitant]
     Indication: ANXIETY
     Dates: start: 20080415
  11. EFFEXOR [Concomitant]
     Indication: DEPRESSION
     Dates: start: 20080415

REACTIONS (5)
  - CONVULSION [None]
  - DIABETES MELLITUS [None]
  - HYPERLIPIDAEMIA [None]
  - HYPERTENSION [None]
  - RHINITIS ALLERGIC [None]
